FAERS Safety Report 5362847-7 (Version None)
Quarter: 2007Q2

REPORT INFORMATION
  Report Type: 
  Country: None (occurrence: None)
  Receive Date: 20070615
  Receipt Date: 20070607
  Transmission Date: 20071010
  Serious: Yes (Hospitalization)
  Sender: FDA-Public Use
  Company Number: FABR-12034

PATIENT
  Age: 13 Year
  Sex: Female
  Weight: 43.0917 kg

DRUGS (5)
  1. FABRAZYME [Suspect]
     Indication: FABRY'S DISEASE
     Dosage: 35 MG Q2WKS IV
     Route: 042
     Dates: start: 20050829
  2. IBUPROFEN [Concomitant]
  3. BENADRYL. MFR: PARKE, DAVIS AND COMPANY [Concomitant]
  4. PREDNISONE TAB [Concomitant]
  5. OXYCODONE HCL [Concomitant]

REACTIONS (6)
  - ABDOMINAL PAIN [None]
  - BACK PAIN [None]
  - CONDITION AGGRAVATED [None]
  - CONSTIPATION [None]
  - FABRY'S DISEASE [None]
  - NO THERAPEUTIC RESPONSE [None]
